FAERS Safety Report 4338745-4 (Version None)
Quarter: 2004Q2

REPORT INFORMATION
  Report Type: 
  Country: None (occurrence: None)
  Receive Date: 20040409
  Receipt Date: 20040326
  Transmission Date: 20050107
  Serious: Yes (Hospitalization, Other)
  Sender: FDA-Public Use
  Company Number: 04-101-0092

PATIENT
  Sex: Female

DRUGS (2)
  1. DOXORUBICIN, UNKNOWN STRENGTH, BEN VENUE LABS [Suspect]
     Indication: NON-HODGKIN'S LYMPHOMA
     Dosage: 1X MONTH FOR 6 MONTHS
     Dates: start: 19990601, end: 19991101
  2. CHOP (CYCLOPHOSPHAMIDE, DOXORUBICIN, VINCRISTINE, PREDNISONE) [Concomitant]

REACTIONS (2)
  - ATRIAL FIBRILLATION [None]
  - CARDIAC FAILURE CONGESTIVE [None]
